FAERS Safety Report 23208619 (Version 1)
Quarter: 2023Q4

REPORT INFORMATION
  Report Type: Other
  Country: GB (occurrence: GB)
  Receive Date: 20231121
  Receipt Date: 20231121
  Transmission Date: 20240109
  Serious: Yes (Disabling, Other)
  Sender: FDA-Public Use
  Company Number: GB-MHRA-MED-202311071649061220-PJYQG

PATIENT
  Age: 32 Year
  Sex: Female

DRUGS (6)
  1. SERTRALINE [Suspect]
     Active Substance: SERTRALINE HYDROCHLORIDE
     Indication: Depression
     Dosage: 50 MILLIGRAM, QD (ONCE A DAY IN THE MORNING FOR 1 WEEK, THEN 100 MG IN THE MORNING FOR 1 WEEK, THEN
     Route: 065
     Dates: start: 20220423
  2. SERTRALINE [Suspect]
     Active Substance: SERTRALINE HYDROCHLORIDE
     Dosage: 100 MILLIGRAM, QD (ONCE A DAY IN THE MORNING FOR 1 WEEK, THEN 100 MG IN THE MORNING FOR 1 WEEK, THEN
     Route: 065
  3. SERTRALINE [Suspect]
     Active Substance: SERTRALINE HYDROCHLORIDE
     Dosage: 150 MILLIGRAM, QD (ONCE A DAY IN THE MORNING FOR 1 WEEK, THEN 100 MG IN THE MORNING FOR 1 WEEK, THEN
     Route: 065
     Dates: end: 20220615
  4. BUPROPION [Concomitant]
     Active Substance: BUPROPION
     Indication: Depression
     Dosage: UNK
     Route: 065
     Dates: start: 20220617, end: 20230516
  5. FLUOXETINE [Concomitant]
     Active Substance: FLUOXETINE HYDROCHLORIDE
     Indication: Depression
     Dosage: UNK
     Route: 065
     Dates: start: 20160201, end: 20220415
  6. IBUPROFEN [Concomitant]
     Active Substance: IBUPROFEN
     Indication: Adverse drug reaction
     Dosage: UNK
     Route: 065

REACTIONS (1)
  - Somnolence [Recovered/Resolved with Sequelae]
